FAERS Safety Report 18350078 (Version 1)
Quarter: 2020Q4

REPORT INFORMATION
  Report Type: Spontaneous
  Country: US (occurrence: US)
  Receive Date: 20201006
  Receipt Date: 20201006
  Transmission Date: 20210114
  Serious: Yes (Other)
  Sender: FDA-Public Use
  Company Number: US-GW PHARMA-202009USGW03356

PATIENT

DRUGS (1)
  1. EPIDIOLEX [Suspect]
     Active Substance: CANNABIDIOL
     Indication: PETIT MAL EPILEPSY
     Dosage: 500 MILLIGRAM, BID
     Route: 048
     Dates: start: 20200423

REACTIONS (2)
  - Product use in unapproved indication [Unknown]
  - Seizure [Unknown]

NARRATIVE: CASE EVENT DATE: 2020
